FAERS Safety Report 5532962-3 (Version None)
Quarter: 2007Q4

REPORT INFORMATION
  Report Type: 
  Country: None (occurrence: None)
  Receive Date: 20071129
  Receipt Date: 20071129
  Transmission Date: 20080405
  Serious: Yes (Other)
  Sender: FDA-Public Use
  Company Number: None

PATIENT
  Age: 58 Year
  Sex: Female
  Weight: 81.6475 kg

DRUGS (1)
  1. CHANTIX [Suspect]
     Indication: SMOKING CESSATION THERAPY
     Dosage: 0.5 MG STARTING DOSAGE  1 DAILY  PO
     Route: 048
     Dates: start: 20071111, end: 20071112

REACTIONS (6)
  - CONSTIPATION [None]
  - HUNGER [None]
  - NAUSEA [None]
  - PAIN [None]
  - SOMNOLENCE [None]
  - VOMITING [None]
